FAERS Safety Report 5453929-X (Version None)
Quarter: 2007Q3

REPORT INFORMATION
  Report Type: 
  Country: None (occurrence: None)
  Receive Date: 20070917
  Receipt Date: 20070905
  Transmission Date: 20080115
  Serious: Yes (Death)
  Sender: FDA-Public Use
  Company Number: ES-ROCHE-517195

PATIENT

DRUGS (2)
  1. CAPECITABINE [Suspect]
     Indication: GASTRIC CANCER
     Dosage: 83% OF THE PLANNED DOSE
     Route: 065
  2. CISPLATIN [Suspect]
     Indication: GASTRIC CANCER
     Dosage: 88% OF THE PLANNED DOSE
     Route: 065

REACTIONS (1)
  - RENAL FAILURE ACUTE [None]
